FAERS Safety Report 11510026 (Version 1)
Quarter: 2015Q3

REPORT INFORMATION
  Report Type: Spontaneous
  Country: US (occurrence: US)
  Receive Date: 20150915
  Receipt Date: 20150915
  Transmission Date: 20151125
  Serious: No
  Sender: FDA-Public Use
  Company Number: US-JNJFOC-20150409346

PATIENT
  Age: 36 Year
  Sex: Female
  Weight: 80.29 kg

DRUGS (1)
  1. MOTRIN IB [Suspect]
     Active Substance: IBUPROFEN
     Indication: PAIN
     Dosage: 5 TABLETS
     Route: 048
     Dates: start: 20150408, end: 20150408

REACTIONS (1)
  - Incorrect dose administered [Unknown]
